FAERS Safety Report 15351941 (Version 2)
Quarter: 2018Q3

REPORT INFORMATION
  Report Type: Report from Study
  Country: GB (occurrence: GB)
  Receive Date: 20180905
  Receipt Date: 20180911
  Transmission Date: 20181010
  Serious: Yes (Hospitalization)
  Sender: FDA-Public Use
  Company Number: GB-ASTRAZENECA-2018SF11113

PATIENT
  Age: 73 Year
  Sex: Male
  Weight: 74.3 kg

DRUGS (4)
  1. LEVETIRACETAM. [Concomitant]
     Active Substance: LEVETIRACETAM
     Dosage: 50 MG
     Route: 048
     Dates: start: 20180315
  2. AZD2281 [Suspect]
     Active Substance: OLAPARIB
     Indication: GLIOBLASTOMA
     Route: 048
     Dates: start: 20180718
  3. RADIOTHERAPY [Suspect]
     Active Substance: RADIATION THERAPY
     Indication: GLIOBLASTOMA
     Dosage: CUMULATIVE DOSE GIVEN PRIOR TO SAE: 40 GY DOSE PRIOR TO SAE: 40 GY
     Route: 065
     Dates: start: 20180620, end: 20180809
  4. LANSOPRAZOLE. [Concomitant]
     Active Substance: LANSOPRAZOLE
     Dosage: 50 MG
     Route: 048
     Dates: start: 20180818

REACTIONS (1)
  - Orthostatic hypotension [Not Recovered/Not Resolved]

NARRATIVE: CASE EVENT DATE: 20180829
